FAERS Safety Report 6198929-X (Version None)
Quarter: 2009Q2

REPORT INFORMATION
  Report Type: 
  Country: None (occurrence: None)
  Receive Date: 20090522
  Receipt Date: 20090513
  Transmission Date: 20091009
  Serious: Yes (Hospitalization, Other)
  Sender: FDA-Public Use
  Company Number: GB-ELI_LILLY_AND_COMPANY-GB200905002664

PATIENT
  Age: 49 Year
  Sex: Male

DRUGS (6)
  1. BYETTA [Suspect]
     Indication: DIABETES MELLITUS
     Dosage: 10 UG, UNKNOWN
     Route: 058
     Dates: end: 20090421
  2. AMLODIPINE [Concomitant]
     Dosage: 5 MG, UNKNOWN
     Route: 048
  3. ATORVASTATIN CALCIUM [Concomitant]
     Dosage: 40 MG, UNKNOWN
     Route: 048
  4. AVANDAMET [Concomitant]
     Indication: DIABETES MELLITUS
     Dosage: 1 D/F, UNKNOWN
     Route: 048
  5. GLIMEPIRIDE [Concomitant]
     Indication: DIABETES MELLITUS
     Dosage: 1 MG, UNKNOWN
     Route: 048
  6. LISINOPRIL [Concomitant]
     Dosage: 20 MG, UNKNOWN
     Route: 048

REACTIONS (2)
  - BLOOD CALCIUM INCREASED [None]
  - PANCREATITIS [None]
